FAERS Safety Report 9245845 (Version 1)
Quarter: 2013Q2

REPORT INFORMATION
  Report Type: Spontaneous
  Country: US (occurrence: US)
  Receive Date: 20130422
  Receipt Date: 20130422
  Transmission Date: 20140414
  Serious: No
  Sender: FDA-Public Use
  Company Number: US-BRISTOL-MYERS SQUIBB COMPANY-17470337

PATIENT
  Age: 83 Year
  Sex: Female
  Weight: 47.16 kg

DRUGS (5)
  1. ELIQUIS [Suspect]
     Indication: ATRIAL FIBRILLATION
     Dosage: 5MG TABS
     Dates: start: 20130218, end: 20130228
  2. SYNTHROID [Concomitant]
     Dosage: 1 DF = 75 MG QOD AND 100 MG QOD
  3. BYSTOLIC [Concomitant]
  4. LISINOPRIL [Concomitant]
  5. AMIODARONE [Concomitant]

REACTIONS (2)
  - Wrong technique in drug usage process [Unknown]
  - Drug ineffective [Unknown]
